FAERS Safety Report 9365776 (Version 4)
Quarter: 2014Q1

REPORT INFORMATION
  Report Type: Report from Study
  Country: BR (occurrence: BR)
  Receive Date: 20130625
  Receipt Date: 20140128
  Transmission Date: 20141002
  Serious: Yes (Hospitalization)
  Sender: FDA-Public Use
  Company Number: BR-ROCHE-1240705

PATIENT
  Sex: Female
  Weight: 76 kg

DRUGS (5)
  1. MABTHERA [Suspect]
     Indication: RHEUMATOID ARTHRITIS
     Route: 065
     Dates: start: 201107, end: 201301
  2. MABTHERA [Suspect]
     Route: 065
     Dates: start: 201311
  3. OMEPRAZOLE [Concomitant]
     Indication: GASTRIC DISORDER
  4. GLICLAZIDE [Concomitant]
     Indication: DIABETES MELLITUS
  5. ENALAPRIL [Concomitant]
     Indication: HYPERTENSION

REACTIONS (6)
  - Ovarian cyst [Recovered/Resolved]
  - Lung disorder [Unknown]
  - Pulmonary fibrosis [Recovered/Resolved]
  - Therapeutic response decreased [Unknown]
  - Bone pain [Unknown]
  - Pain [Unknown]
